FAERS Safety Report 8086016-5 (Version None)
Quarter: 2012Q1

REPORT INFORMATION
  Report Type: 
  Country: None (occurrence: None)
  Receive Date: 20120128
  Receipt Date: 20110608
  Transmission Date: 20120608
  Serious: No
  Sender: FDA-Public Use
  Company Number: US-ABBOTT-11P-163-0731417-00

PATIENT
  Sex: Female

DRUGS (3)
  1. UNNAMED PAIN MEDICATION [Concomitant]
     Indication: PAIN
  2. HUMIRA [Suspect]
     Indication: RHEUMATOID ARTHRITIS
     Dates: start: 20060101, end: 20060101
  3. HUMIRA [Suspect]
     Indication: RHEUMATOID ARTHRITIS

REACTIONS (5)
  - IRON DEFICIENCY [None]
  - ANAEMIA [None]
  - UTERINE HAEMORRHAGE [None]
  - INJECTION SITE PAIN [None]
  - URTICARIA [None]
